FAERS Safety Report 9904551 (Version 2)
Quarter: 2014Q4

REPORT INFORMATION
  Report Type: Spontaneous
  Country: SE (occurrence: SE)
  Receive Date: 20140218
  Receipt Date: 20141217
  Transmission Date: 20150529
  Serious: Yes (Other)
  Sender: FDA-Public Use
  Company Number: SE-NOVOPROD-399964

PATIENT
  Sex: Male

DRUGS (7)
  1. LOSARTAN                           /01121602/ [Concomitant]
     Active Substance: LOSARTAN
  2. VICTOZA [Suspect]
     Active Substance: LIRAGLUTIDE
     Indication: DIABETES MELLITUS
     Dosage: UNK
     Route: 058
     Dates: start: 20121203
  3. SIMVASTATIN +PHARMA [Concomitant]
  4. METOPROLOL                         /00376902/ [Concomitant]
     Active Substance: METOPROLOL
  5. AMLODIPINE                         /00972402/ [Concomitant]
     Active Substance: AMLODIPINE BESYLATE
  6. TROMBYL [Concomitant]
     Active Substance: ASPIRIN
     Dosage: 75 MG, UNK
  7. NOVOMIX 30 FLEXPEN [Concomitant]
     Active Substance: INSULIN ASPART

REACTIONS (1)
  - Periodontitis [Not Recovered/Not Resolved]
